FAERS Safety Report 24065018 (Version 2)
Quarter: 2024Q3

REPORT INFORMATION
  Report Type: Spontaneous
  Country: FR (occurrence: FR)
  Receive Date: 20240709
  Receipt Date: 20240904
  Transmission Date: 20241016
  Serious: Yes (Other)
  Sender: NOVARTIS
  Company Number: FR-002147023-NVSC2024FR141143

PATIENT
  Sex: Female

DRUGS (2)
  1. KESIMPTA [Suspect]
     Active Substance: OFATUMUMAB
     Indication: Multiple sclerosis
     Dosage: UNK (20 MG 0.4 ML)
     Route: 065
     Dates: start: 20240610, end: 20240610
  2. KESIMPTA [Suspect]
     Active Substance: OFATUMUMAB
     Dosage: UNK (20 MG 0.4 ML)
     Route: 065
     Dates: start: 20240617, end: 20240617

REACTIONS (1)
  - Pyelonephritis [Recovering/Resolving]
